FAERS Safety Report 9341403 (Version 1)
Quarter: 2013Q2

REPORT INFORMATION
  Report Type: Spontaneous
  Country: DK (occurrence: DK)
  Receive Date: 20130611
  Receipt Date: 20130611
  Transmission Date: 20140414
  Serious: No
  Sender: FDA-Public Use
  Company Number: DK-US-EMD SERONO, INC.-E2B_7216728

PATIENT
  Age: 38 Year
  Sex: Female

DRUGS (1)
  1. REBIF [Suspect]
     Indication: MULTIPLE SCLEROSIS
     Dates: end: 200509

REACTIONS (3)
  - Malaise [Unknown]
  - Dyspnoea [Unknown]
  - Influenza like illness [Unknown]
